FAERS Safety Report 21035882 (Version 2)
Quarter: 2022Q3

REPORT INFORMATION
  Report Type: Spontaneous
  Country: PT (occurrence: PT)
  Receive Date: 20220701
  Receipt Date: 20220815
  Transmission Date: 20221027
  Serious: Yes (Other)
  Sender: FDA-Public Use
  Company Number: PT-GILEAD-2022-0588087

PATIENT
  Age: 48 Year
  Sex: Male

DRUGS (1)
  1. HARVONI [Suspect]
     Active Substance: LEDIPASVIR\SOFOSBUVIR
     Indication: Hepatitis C
     Dosage: UNK
     Route: 065
     Dates: start: 201804

REACTIONS (17)
  - Blindness [Not Recovered/Not Resolved]
  - Pancreatitis chronic [Unknown]
  - Renal failure [Unknown]
  - Arrhythmia [Unknown]
  - Headache [Unknown]
  - Organ failure [Not Recovered/Not Resolved]
  - Confusional state [Unknown]
  - Constipation [Not Recovered/Not Resolved]
  - Mobility decreased [Not Recovered/Not Resolved]
  - Illness [Unknown]
  - Dyspepsia [Unknown]
  - Abdominal pain upper [Unknown]
  - Vision blurred [Unknown]
  - Depression [Unknown]
  - Hepatic steatosis [Unknown]
  - Loss of personal independence in daily activities [Unknown]
  - Thinking abnormal [Unknown]
